FAERS Safety Report 8924414 (Version 1)
Quarter: 2012Q4

REPORT INFORMATION
  Report Type: 
  Country: IT (occurrence: IT)
  Receive Date: 20121126
  Receipt Date: 20121126
  Transmission Date: 20130627
  Serious: Yes (Hospitalization)
  Sender: FDA-Public Use
  Company Number: PHHY2012IT107014

PATIENT
  Age: 88 Year
  Sex: Female

DRUGS (8)
  1. TRAMADOL [Suspect]
     Indication: RIB FRACTURE
     Dosage: 60 DF, daily
     Route: 048
     Dates: start: 20121016, end: 20121028
  2. CIPROFLOXACIN [Suspect]
     Indication: PNEUMONITIS
     Dosage: 1 g, Daily
     Route: 048
     Dates: start: 20121016, end: 20121028
  3. LEVOTUSS [Concomitant]
     Route: 048
  4. TOTALIP [Concomitant]
     Route: 048
  5. LIBRADIN [Concomitant]
     Route: 048
  6. KARVEZIDE [Concomitant]
     Route: 048
  7. LANSOPRAZOLE [Concomitant]
     Indication: DYSPEPSIA
     Dates: start: 20121028
  8. ACETYLSALICYLIC ACID [Concomitant]

REACTIONS (2)
  - Eyelid oedema [Recovered/Resolved]
  - Erythema [Recovered/Resolved]
